FAERS Safety Report 7301368-9 (Version None)
Quarter: 2011Q1

REPORT INFORMATION
  Report Type: 
  Country: None (occurrence: None)
  Receive Date: 20110218
  Receipt Date: 20110204
  Transmission Date: 20110831
  Serious: Yes (Hospitalization)
  Sender: FDA-Public Use
  Company Number: PHHY2011US10033

PATIENT
  Sex: Female

DRUGS (1)
  1. EXJADE [Suspect]
     Dosage: 1625 MG, QDUD
     Route: 048

REACTIONS (3)
  - HEPATIC INFECTION [None]
  - URINARY TRACT INFECTION [None]
  - KIDNEY INFECTION [None]
